FAERS Safety Report 15892664 (Version 1)
Quarter: 2019Q1

REPORT INFORMATION
  Report Type: Spontaneous
  Country: FI (occurrence: FI)
  Receive Date: 20190130
  Receipt Date: 20190130
  Transmission Date: 20190417
  Serious: Yes (Other)
  Sender: FDA-Public Use
  Company Number: FI-MYLANLABS-2019M1008662

PATIENT
  Age: 45 Year
  Sex: Female
  Weight: 56 kg

DRUGS (3)
  1. MIDAZOLAM [Suspect]
     Active Substance: MIDAZOLAM HYDROCHLORIDE
     Indication: SEDATIVE THERAPY
     Dosage: 7.5 MILLIGRAM
     Route: 042
  2. CITANEST WITH OCTAPRESSIN [Concomitant]
     Indication: LOCAL ANAESTHESIA
     Dosage: 1.8 MILLILITER
     Route: 065
  3. XYLOCAIN-ADRENALIN [Concomitant]
     Active Substance: EPINEPHRINE BITARTRATE\LIDOCAINE HYDROCHLORIDE
     Indication: LOCAL ANAESTHESIA
     Dosage: 1.8 MILLILITER
     Route: 065

REACTIONS (1)
  - Hypoxia [Recovered/Resolved]
